FAERS Safety Report 5785781-7 (Version None)
Quarter: 2008Q2

REPORT INFORMATION
  Report Type: 
  Country: None (occurrence: None)
  Receive Date: 20080605
  Receipt Date: 20080225
  Transmission Date: 20081010
  Serious: No
  Sender: FDA-Public Use
  Company Number: A0711497A

PATIENT

DRUGS (1)
  1. ALLI [Suspect]
     Dates: start: 20080101

REACTIONS (6)
  - CONSTIPATION [None]
  - DIZZINESS [None]
  - GASTROINTESTINAL DISORDER [None]
  - HYPERHIDROSIS [None]
  - ILL-DEFINED DISORDER [None]
  - THROAT TIGHTNESS [None]
